FAERS Safety Report 18536856 (Version 1)
Quarter: 2020Q4

REPORT INFORMATION
  Report Type: Other
  Country: None (occurrence: CN)
  Receive Date: 20201124
  Receipt Date: 20201124
  Transmission Date: 20210114
  Serious: Yes (Hospitalization)
  Sender: FDA-Public Use
  Company Number: CN-JIANGSU HENGRUI MEDICINE CO., LTD.-2096217

PATIENT
  Age: 67 Year
  Sex: Male
  Weight: 56 kg

DRUGS (3)
  1. GLUCOSE INJECTION [Concomitant]
     Active Substance: DEXTROSE
     Route: 041
     Dates: start: 20200930, end: 20201014
  2. OXALIPLATIN INJECTION USP, 5 MG/ML, PACKAGED IN 50 MG/10 ML AND 100 MG [Suspect]
     Active Substance: OXALIPLATIN
     Indication: GASTRIC CANCER
     Route: 041
     Dates: start: 20200930, end: 20201014
  3. TEGAFUR, GIMERACIL AND OTERACIL POTASSIUM CAPSULES/ TIGIO [Suspect]
     Active Substance: GIMERACIL\OTERACIL\TEGAFUR
     Route: 048
     Dates: start: 20200930, end: 20201014

REACTIONS (1)
  - Cystitis [Recovered/Resolved]

NARRATIVE: CASE EVENT DATE: 20201014
